FAERS Safety Report 6285886-0 (Version None)
Quarter: 2009Q3

REPORT INFORMATION
  Report Type: 
  Country: None (occurrence: None)
  Receive Date: 20090728
  Receipt Date: 20090721
  Transmission Date: 20100115
  Serious: Yes (Hospitalization)
  Sender: FDA-Public Use
  Company Number: US-ELI_LILLY_AND_COMPANY-US200904000504

PATIENT
  Sex: Female

DRUGS (3)
  1. HUMALOG [Suspect]
     Dosage: UNK, UNK
     Route: 058
     Dates: end: 20090310
  2. HUMALOG [Suspect]
     Dosage: UNK, UNK
     Dates: start: 20090310
  3. HUMALOG [Suspect]

REACTIONS (4)
  - BLOOD GLUCOSE INCREASED [None]
  - DRUG PRESCRIBING ERROR [None]
  - INCORRECT DRUG DOSAGE FORM ADMINISTERED [None]
  - VISUAL IMPAIRMENT [None]
